FAERS Safety Report 23458332 (Version 1)
Quarter: 2024Q1

REPORT INFORMATION
  Report Type: Spontaneous
  Country: DE (occurrence: DE)
  Receive Date: 20240130
  Receipt Date: 20240130
  Transmission Date: 20240410
  Serious: Yes (Other)
  Sender: FDA-Public Use
  Company Number: DE-MYLANLABS-2024M1008827

PATIENT
  Age: 65 Year
  Sex: Female

DRUGS (2)
  1. CERTOPARIN SODIUM [Suspect]
     Active Substance: CERTOPARIN SODIUM
     Indication: Prophylaxis
     Dosage: UNKNOWN
     Route: 065
  2. ARIXTRA [Suspect]
     Active Substance: FONDAPARINUX SODIUM
     Indication: Superficial vein thrombosis
     Dosage: UNK
     Route: 065

REACTIONS (3)
  - Superficial vein thrombosis [Unknown]
  - Injection site haemorrhage [Unknown]
  - Off label use [Unknown]
